FAERS Safety Report 10442540 (Version 2)
Quarter: 2014Q3

REPORT INFORMATION
  Report Type: Spontaneous
  Country: BR (occurrence: BR)
  Receive Date: 20140909
  Receipt Date: 20140929
  Transmission Date: 20150326
  Serious: Yes (Death, Other)
  Sender: FDA-Public Use
  Company Number: US-ASTRAZENECA-2014SE66797

PATIENT
  Age: 141 Day
  Sex: Female
  Weight: 4.8 kg

DRUGS (3)
  1. FUROSEMIDE. [Concomitant]
     Active Substance: FUROSEMIDE
     Indication: DIURETIC THERAPY
     Route: 048
  2. SYNAGIS [Suspect]
     Active Substance: PALIVIZUMAB
     Indication: HEART DISEASE CONGENITAL
     Route: 030
     Dates: start: 20140428
  3. CAPTOPRIL. [Concomitant]
     Active Substance: CAPTOPRIL
     Indication: PULMONARY HYPERTENSION
     Route: 048

REACTIONS (9)
  - Haemorrhage [Unknown]
  - Pneumonia [Fatal]
  - Vessel perforation [Unknown]
  - Oxygen saturation decreased [Unknown]
  - Skin discolouration [Unknown]
  - Platelet count decreased [Unknown]
  - Nosocomial infection [Fatal]
  - Multi-organ failure [Fatal]
  - Fluid retention [Unknown]

NARRATIVE: CASE EVENT DATE: 20140606
